FAERS Safety Report 7282742-6 (Version None)
Quarter: 2011Q1

REPORT INFORMATION
  Report Type: 
  Country: None (occurrence: None)
  Receive Date: 20110209
  Receipt Date: 20110127
  Transmission Date: 20110831
  Serious: Yes (Hospitalization, Other)
  Sender: FDA-Public Use
  Company Number: PHFR2010GB05438

PATIENT
  Sex: Male

DRUGS (5)
  1. CLOZARIL [Suspect]
     Dosage: 400 MG, QD
     Route: 048
     Dates: end: 20101202
  2. CLOZARIL [Suspect]
     Indication: SCHIZOPHRENIA
     Dosage: UNK MG, UNK
     Route: 048
     Dates: start: 20100927, end: 20101117
  3. DIAZEPAM [Concomitant]
     Dosage: UNK MG, UNK
  4. PROCYCLIDINE [Concomitant]
     Dosage: UNK MG, UNK
  5. QUETIAPINE [Concomitant]
     Indication: SCHIZOPHRENIA
     Dosage: 750 MG, QD
     Route: 048

REACTIONS (7)
  - AGRANULOCYTOSIS [None]
  - NEUTROPHIL COUNT DECREASED [None]
  - THROMBOCYTOPENIA [None]
  - DECUBITUS ULCER [None]
  - WHITE BLOOD CELL COUNT DECREASED [None]
  - NEUTROPENIC SEPSIS [None]
  - BODY TEMPERATURE INCREASED [None]
